FAERS Safety Report 9796407 (Version 3)
Quarter: 2014Q1

REPORT INFORMATION
  Report Type: Spontaneous
  Country: JP (occurrence: JP)
  Receive Date: 20140103
  Receipt Date: 20140313
  Transmission Date: 20141002
  Serious: Yes (Hospitalization)
  Sender: FDA-Public Use
  Company Number: JP-BAYER-2013-158215

PATIENT
  Age: 29 Year
  Sex: Female

DRUGS (3)
  1. BAYASPIRIN [Suspect]
     Indication: THROMBOSIS PROPHYLAXIS
     Dosage: 100 MG, DAILY DOSE
     Route: 048
  2. CLOPIDOGREL SULFATE [Suspect]
     Indication: THROMBOSIS PROPHYLAXIS
     Dosage: DAILY DOSE 50 MG
     Route: 048
  3. CILOSTAZOL [Concomitant]
     Dosage: DAILY DOSE 100 MG
     Route: 048

REACTIONS (1)
  - Arteriovenous fistula [Recovered/Resolved]
